FAERS Safety Report 7248396-X (Version None)
Quarter: 2011Q1

REPORT INFORMATION
  Report Type: 
  Country: None (occurrence: None)
  Receive Date: 20110127
  Receipt Date: 20110114
  Transmission Date: 20110831
  Serious: Yes (Other)
  Sender: FDA-Public Use
  Company Number: US-ELI_LILLY_AND_COMPANY-US201101004479

PATIENT
  Age: 75 Year
  Sex: Male

DRUGS (1)
  1. ALIMTA [Suspect]
     Indication: NON-SMALL CELL LUNG CANCER

REACTIONS (5)
  - DRY SKIN [None]
  - CONSTIPATION [None]
  - RASH [None]
  - HAEMOPTYSIS [None]
  - DIARRHOEA [None]
